FAERS Safety Report 6668087-3 (Version None)
Quarter: 2010Q2

REPORT INFORMATION
  Report Type: 
  Country: None (occurrence: None)
  Receive Date: 20100405
  Receipt Date: 20100325
  Transmission Date: 20101027
  Serious: Yes (Other)
  Sender: FDA-Public Use
  Company Number: JP-BRISTOL-MYERS SQUIBB COMPANY-15046444

PATIENT
  Age: 35 Year
  Sex: Male
  Weight: 65 kg

DRUGS (3)
  1. ABILIFY [Suspect]
     Indication: DELUSION
     Dosage: 20OCT09-18JAN10,24MG,91D 19JAN10-22MAR10,18MG,(63D) 23MAR10-UNK,12MG
     Route: 048
     Dates: start: 20091020
  2. ABILIFY [Suspect]
     Indication: BLUNTED AFFECT
     Dosage: 20OCT09-18JAN10,24MG,91D 19JAN10-22MAR10,18MG,(63D) 23MAR10-UNK,12MG
     Route: 048
     Dates: start: 20091020
  3. BENZALIN [Concomitant]
     Dosage: TABS
     Dates: start: 20091010, end: 20100119

REACTIONS (1)
  - EYELID PTOSIS [None]
